FAERS Safety Report 7580981-8 (Version None)
Quarter: 2011Q2

REPORT INFORMATION
  Report Type: 
  Country: None (occurrence: None)
  Receive Date: 20110622
  Receipt Date: 20110607
  Transmission Date: 20111010
  Serious: Yes (Hospitalization, Other)
  Sender: FDA-Public Use
  Company Number: 2011MA006905

PATIENT
  Age: 7 Month
  Sex: Male

DRUGS (3)
  1. IBUPROFEN [Suspect]
     Indication: PYREXIA
     Dosage: 7.5 MG/KG;
  2. IBUPROFEN [Suspect]
     Indication: COUGH
     Dosage: 7.5 MG/KG;
  3. IBUPROFEN [Suspect]
     Indication: RHINORRHOEA
     Dosage: 7.5 MG/KG;

REACTIONS (5)
  - HEART RATE INCREASED [None]
  - CYANOSIS [None]
  - METHAEMOGLOBINAEMIA [None]
  - RESPIRATORY RATE INCREASED [None]
  - HAEMOGLOBIN DECREASED [None]
